FAERS Safety Report 4845341-9 (Version None)
Quarter: 2005Q4

REPORT INFORMATION
  Report Type: 
  Country: None (occurrence: None)
  Receive Date: 20051205
  Receipt Date: 20051128
  Transmission Date: 20060501
  Serious: Yes (Hospitalization)
  Sender: FDA-Public Use
  Company Number: FR-GLAXOSMITHKLINE-B0402356A

PATIENT
  Age: 67 Year
  Sex: Female

DRUGS (2)
  1. TOPOTECAN [Suspect]
     Indication: OVARIAN CANCER
     Dosage: 2.5MGM2 PER DAY
     Route: 042
     Dates: start: 20050817, end: 20051117
  2. GEMCITABINE [Suspect]
     Indication: OVARIAN CANCER
     Route: 042
     Dates: start: 20050817, end: 20051117

REACTIONS (1)
  - PULMONARY EMBOLISM [None]
